FAERS Safety Report 9562672 (Version 1)
Quarter: 2013Q3

REPORT INFORMATION
  Report Type: Spontaneous
  Country: US (occurrence: US)
  Receive Date: 20130927
  Receipt Date: 20130927
  Transmission Date: 20140515
  Serious: No
  Sender: FDA-Public Use
  Company Number: US-PFIZER INC-2013275488

PATIENT
  Age: 40 Year
  Sex: Female

DRUGS (11)
  1. CLEOCIN [Suspect]
     Dosage: UNK
  2. NEURONTIN [Suspect]
     Dosage: UNK
  3. TRAMADOL HYDROCHLORIDE [Suspect]
     Dosage: UNK
  4. ACETYLSALICYLIC ACID [Suspect]
     Dosage: UNK
  5. VICODIN [Suspect]
     Dosage: UNK
  6. ZANTAC [Suspect]
     Dosage: UNK
  7. FIORICET [Suspect]
     Dosage: UNK
  8. IMITREX [Suspect]
     Dosage: UNK
  9. MAXALT [Suspect]
     Dosage: UNK
  10. NORTRIPTYLINE [Suspect]
     Dosage: UNK
  11. PEPCID AC [Suspect]
     Dosage: UNK

REACTIONS (1)
  - Drug hypersensitivity [Unknown]
